FAERS Safety Report 6247273-0 (Version None)
Quarter: 2009Q2

REPORT INFORMATION
  Report Type: 
  Country: None (occurrence: None)
  Receive Date: 20090626
  Receipt Date: 20090616
  Transmission Date: 20091009
  Serious: Yes (Hospitalization)
  Sender: FDA-Public Use
  Company Number: A0776641A

PATIENT
  Age: 46 Year
  Sex: Male

DRUGS (8)
  1. AVANDIA [Suspect]
     Indication: DRUG USE FOR UNKNOWN INDICATION
     Dosage: 8MG PER DAY
     Route: 048
     Dates: start: 20040101, end: 20070301
  2. LISINOPRIL [Concomitant]
  3. ZOCOR [Concomitant]
  4. PREVACID [Concomitant]
  5. GLUCOPHAGE [Concomitant]
  6. HYDROCHLOROTHIAZIDE [Concomitant]
  7. COREG [Concomitant]
  8. LANTUS [Concomitant]

REACTIONS (1)
  - MYOCARDIAL INFARCTION [None]
